FAERS Safety Report 5977872-2 (Version None)
Quarter: 2008Q4

REPORT INFORMATION
  Report Type: 
  Country: None (occurrence: None)
  Receive Date: 20081203
  Receipt Date: 20081201
  Transmission Date: 20090506
  Serious: Yes (Death)
  Sender: FDA-Public Use
  Company Number: US-JNJFOC-20081102322

PATIENT
  Sex: Female
  Weight: 127.01 kg

DRUGS (7)
  1. FENTANYL TRANSDERMAL SYSTEM [Suspect]
     Dosage: A 100 UG/HR PATCH AND ANOTHER 50 UG/HR TO MAKE A TOTAL OF 150 UG/HR
     Route: 062
  2. FENTANYL TRANSDERMAL SYSTEM [Suspect]
     Indication: ARTHRALGIA
     Route: 062
  3. ALBUTEROL [Concomitant]
     Indication: ASTHMA
     Route: 055
  4. SINGULAIR [Concomitant]
     Indication: ASTHMA
     Route: 048
  5. PREVACID [Concomitant]
     Indication: GASTRIC DISORDER
     Route: 048
  6. XANAX [Concomitant]
     Indication: ANXIETY
     Route: 048
  7. PERCOCET [Concomitant]
     Indication: BREAKTHROUGH PAIN
     Dosage: 10/335/TABLET/10/335 AS NEEDED ORALLY
     Route: 048

REACTIONS (5)
  - ABASIA [None]
  - CARDIAC ARREST [None]
  - CARDIAC VALVE DISEASE [None]
  - FEELING ABNORMAL [None]
  - INAPPROPRIATE SCHEDULE OF DRUG ADMINISTRATION [None]
